FAERS Safety Report 6669280-6 (Version None)
Quarter: 2010Q2

REPORT INFORMATION
  Report Type: 
  Country: None (occurrence: None)
  Receive Date: 20100406
  Receipt Date: 20070828
  Transmission Date: 20101027
  Serious: Yes (Hospitalization)
  Sender: FDA-Public Use
  Company Number: A0853063A

PATIENT

DRUGS (1)
  1. ALLI [Suspect]
     Route: 048
     Dates: start: 20070724

REACTIONS (3)
  - DIVERTICULITIS [None]
  - PAIN [None]
  - PYREXIA [None]
